FAERS Safety Report 7157854-8 (Version None)
Quarter: 2010Q4

REPORT INFORMATION
  Report Type: 
  Country: None (occurrence: None)
  Receive Date: 20101214
  Receipt Date: 20101103
  Transmission Date: 20110411
  Serious: No
  Sender: FDA-Public Use
  Company Number: A0890496A

PATIENT
  Age: 54 Year
  Sex: Female

DRUGS (2)
  1. NICORETTE (MINT) [Suspect]
     Dates: start: 20101101, end: 20101101
  2. NICODERM CQ [Suspect]

REACTIONS (9)
  - APPLICATION SITE ERYTHEMA [None]
  - APPLICATION SITE PRURITUS [None]
  - APPLICATION SITE RASH [None]
  - APPLICATION SITE REACTION [None]
  - DRUG INEFFECTIVE [None]
  - HYPERSENSITIVITY [None]
  - NICOTINE DEPENDENCE [None]
  - ORAL DISCOMFORT [None]
  - PARAESTHESIA ORAL [None]
